FAERS Safety Report 6064647-1 (Version None)
Quarter: 2009Q1

REPORT INFORMATION
  Report Type: 
  Country: None (occurrence: None)
  Receive Date: 20090204
  Receipt Date: 20080229
  Transmission Date: 20090719
  Serious: No
  Sender: FDA-Public Use
  Company Number: A0712712A

PATIENT
  Age: 55 Year
  Sex: Male

DRUGS (3)
  1. ARIXTRA [Suspect]
     Dosage: 2.5MG PER DAY
     Route: 058
     Dates: start: 20080223
  2. CELEBREX [Concomitant]
  3. FERROUS SULFATE TAB [Concomitant]

REACTIONS (2)
  - INSOMNIA [None]
  - PYREXIA [None]
